FAERS Safety Report 6305841-1 (Version None)
Quarter: 2009Q3

REPORT INFORMATION
  Report Type: 
  Country: None (occurrence: None)
  Receive Date: 20090812
  Receipt Date: 20090730
  Transmission Date: 20100115
  Serious: Yes (Death, Other)
  Sender: FDA-Public Use
  Company Number: JP-BRISTOL-MYERS SQUIBB COMPANY-14697585

PATIENT
  Age: 31 Year
  Sex: Male

DRUGS (20)
  1. AMPHOTERICIN B [Suspect]
     Indication: LANGERHANS' CELL GRANULOMATOSIS
  2. PARAPLATIN [Suspect]
     Indication: LANGERHANS' CELL GRANULOMATOSIS
     Route: 041
  3. HYDREA [Suspect]
     Indication: LANGERHANS' CELL GRANULOMATOSIS
     Dosage: 1 DOSAGEFORM = 500-3000 MG
     Route: 048
  4. CYCLOPHOSPHAMIDE [Suspect]
     Indication: LANGERHANS' CELL GRANULOMATOSIS
     Dosage: 6 COURSES
  5. ETOPOSIDE [Suspect]
     Indication: LANGERHANS' CELL GRANULOMATOSIS
     Dosage: 1 DOSAGEFORM = 25-200 MG
     Route: 065
  6. VINCRISTINE SULFATE [Suspect]
     Indication: LANGERHANS' CELL GRANULOMATOSIS
  7. MITOXANTRONE [Suspect]
     Indication: LANGERHANS' CELL GRANULOMATOSIS
     Dosage: FORM = INJ 2 COURSES
     Route: 042
  8. PREDNISOLONE [Suspect]
     Indication: LANGERHANS' CELL GRANULOMATOSIS
     Dosage: 1 DOSAGEFORM = 30-40 MG/M2 (HIGH DOSES USED FOR THE LAST 6 MONTHS)
  9. INTERFERON ALPHA [Suspect]
     Indication: LANGERHANS' CELL GRANULOMATOSIS
     Dosage: FORM = INJ 1 DOSAGEFORM = 3M-10M IU
  10. CYCLOSPORINE [Suspect]
     Indication: LANGERHANS' CELL GRANULOMATOSIS
  11. VINBLASTINE [Suspect]
     Indication: LANGERHANS' CELL GRANULOMATOSIS
     Dosage: FORM = INJ 4 COURSES
     Route: 042
  12. SOBUZOXANE [Suspect]
     Indication: LANGERHANS' CELL GRANULOMATOSIS
     Dosage: FORM = GRAN 1 DOSAGEFORM = 1200-2000 MG
     Route: 048
  13. METHYLPREDNISOLONE [Suspect]
     Indication: LANGERHANS' CELL GRANULOMATOSIS
     Dosage: 7 COURSES
  14. METHOTREXATE [Suspect]
     Indication: LANGERHANS' CELL GRANULOMATOSIS
  15. VINDESINE [Suspect]
     Indication: LANGERHANS' CELL GRANULOMATOSIS
     Dosage: 6 COURSES
  16. PINORUBIN [Suspect]
     Indication: LANGERHANS' CELL GRANULOMATOSIS
     Dosage: 6 COURSES
  17. RADIOTHERAPY [Suspect]
     Indication: LUNG NEOPLASM
     Dosage: 1 DOSAGEFORM = 56 GY (TOTAL EXPOSURE)
  18. RADIOTHERAPY [Suspect]
     Indication: OSTEOLYSIS
     Dosage: 1 DOSAGEFORM = 56 GY (TOTAL EXPOSURE)
  19. ONCOVIN [Suspect]
     Indication: LANGERHANS' CELL GRANULOMATOSIS
  20. DEXAMETHASONE [Concomitant]
     Indication: LANGERHANS' CELL GRANULOMATOSIS

REACTIONS (3)
  - MALIGNANT FIBROUS HISTIOCYTOMA [None]
  - NEUTROPENIA [None]
  - PNEUMONIA [None]
